FAERS Safety Report 15469492 (Version 2)
Quarter: 2018Q4

REPORT INFORMATION
  Report Type: Spontaneous
  Country: CA (occurrence: CA)
  Receive Date: 20181005
  Receipt Date: 20181015
  Transmission Date: 20190205
  Serious: Yes (Death, Other)
  Sender: FDA-Public Use
  Company Number: CA-GILEAD-2018-0366091

PATIENT
  Age: 68 Year
  Sex: Male
  Weight: 99.77 kg

DRUGS (3)
  1. NORVASC [Concomitant]
     Active Substance: AMLODIPINE BESYLATE
  2. ALTACE [Concomitant]
     Active Substance: RAMIPRIL
  3. EPCLUSA [Suspect]
     Active Substance: SOFOSBUVIR\VELPATASVIR
     Indication: CHRONIC HEPATITIS C
     Dosage: 1 DF, UNK
     Route: 048
     Dates: start: 20180813

REACTIONS (2)
  - Completed suicide [Fatal]
  - Alcohol use [Not Recovered/Not Resolved]

NARRATIVE: CASE EVENT DATE: 20180929
